FAERS Safety Report 10961685 (Version 1)
Quarter: 2015Q1

REPORT INFORMATION
  Report Type: Spontaneous
  Country: US (occurrence: None)
  Receive Date: 20150326
  Receipt Date: 20150326
  Transmission Date: 20150721
  Serious: No
  Sender: FDA-Public Use
  Company Number: None

PATIENT
  Age: 85 Year
  Sex: Female
  Weight: 106.6 kg

DRUGS (1)
  1. ESTRING [Suspect]
     Active Substance: ESTRADIOL

REACTIONS (7)
  - Vaginal discharge [None]
  - Mass [None]
  - Infrequent bowel movements [None]
  - Aphasia [None]
  - Dementia [None]
  - Immobile [None]
  - Urinary tract infection [None]

NARRATIVE: CASE EVENT DATE: 20150325
